FAERS Safety Report 5682215-8 (Version None)
Quarter: 2008Q1

REPORT INFORMATION
  Report Type: 
  Country: None (occurrence: None)
  Receive Date: 20080327
  Receipt Date: 20080316
  Transmission Date: 20080703
  Serious: Yes (Hospitalization, Other)
  Sender: FDA-Public Use
  Company Number: AT-ELI_LILLY_AND_COMPANY-AT200801005488

PATIENT
  Age: 67 Year
  Sex: Male

DRUGS (10)
  1. ZYPREXA [Suspect]
     Indication: DEPRESSION
     Dosage: 2.5 MG, 3/D
     Route: 048
     Dates: start: 20070927, end: 20080115
  2. TRAZODONE HCL [Concomitant]
     Indication: DEPRESSION
     Dosage: 150 MG, DAILY (1/D)
     Route: 048
     Dates: start: 20070927, end: 20080115
  3. PLAVIX [Concomitant]
     Indication: ARTERIAL OCCLUSIVE DISEASE
     Dosage: 75 MG, EACH MORNING
     Dates: start: 19990101
  4. ACETYLSALICYLIC ACID SRT [Concomitant]
     Indication: INFARCTION
     Dates: start: 19990101
  5. LESCOL [Concomitant]
     Dosage: 80 MG, DAILY (1/D)
  6. PANTOPRAZOLE SODIUM [Concomitant]
     Dosage: 40 MG, EACH MORNING
  7. ACECOMB [Concomitant]
     Dosage: 2 D/F, EACH MORNING
  8. RISPERDAL [Concomitant]
     Dosage: 2 MG, EACH EVENING
  9. AVELOX [Concomitant]
     Dosage: 400 MG, EACH MORNING
     Dates: end: 20080213
  10. LOVENOX [Concomitant]
     Dosage: 20 MG, EACH MORNING

REACTIONS (10)
  - DRUG DEPENDENCE [None]
  - GENERAL PHYSICAL HEALTH DETERIORATION [None]
  - HYPERLIPIDAEMIA [None]
  - OVERDOSE [None]
  - PARKINSONISM [None]
  - PERSONALITY CHANGE DUE TO A GENERAL MEDICAL CONDITION [None]
  - POISONING [None]
  - RENAL FAILURE [None]
  - SOMNOLENCE [None]
  - URINARY TRACT INFECTION [None]
